FAERS Safety Report 15977940 (Version 1)
Quarter: 2019Q1

REPORT INFORMATION
  Report Type: Spontaneous
  Country: BR (occurrence: BR)
  Receive Date: 20190218
  Receipt Date: 20190218
  Transmission Date: 20190418
  Serious: Yes (Disabling)
  Sender: FDA-Public Use
  Company Number: BR-ABBVIE-19K-020-2664906-00

PATIENT
  Sex: Female
  Weight: 64.5 kg

DRUGS (9)
  1. FOLIC ACID. [Concomitant]
     Active Substance: FOLIC ACID
     Indication: PRODUCT USED FOR UNKNOWN INDICATION
     Dosage: EVERY THURSDAY
     Route: 048
     Dates: start: 201811
  2. HUMIRA [Suspect]
     Active Substance: ADALIMUMAB
     Route: 058
     Dates: start: 201901
  3. ESTRADIOL. [Concomitant]
     Active Substance: ESTRADIOL
     Indication: MENOPAUSE
     Route: 048
     Dates: start: 2011
  4. NORETHINDRONE. [Concomitant]
     Active Substance: NORETHINDRONE
     Indication: MENOPAUSE
     Route: 048
     Dates: start: 2011
  5. METHOTREXATE. [Concomitant]
     Active Substance: METHOTREXATE
     Indication: PRODUCT USED FOR UNKNOWN INDICATION
     Dosage: EVERY MONDAY
     Route: 048
     Dates: start: 201812
  6. DIPYRONE [Suspect]
     Active Substance: DIPYRONE
     Indication: PRODUCT USED FOR UNKNOWN INDICATION
     Route: 065
  7. IBUPROFEN. [Suspect]
     Active Substance: IBUPROFEN
     Indication: PRODUCT USED FOR UNKNOWN INDICATION
     Route: 065
  8. HEPATITIS B VACCINE [Suspect]
     Active Substance: HEPATITIS B VIRUS VACCINE
     Indication: PRODUCT USED FOR UNKNOWN INDICATION
     Route: 065
  9. HUMIRA [Suspect]
     Active Substance: ADALIMUMAB
     Indication: ANKYLOSING SPONDYLITIS
     Route: 058
     Dates: end: 2011

REACTIONS (12)
  - Pruritus allergic [Unknown]
  - Drug hypersensitivity [Recovered/Resolved]
  - Arthralgia [Recovering/Resolving]
  - Erythema [Unknown]
  - Musculoskeletal stiffness [Recovering/Resolving]
  - Allergy to vaccine [Unknown]
  - Gait disturbance [Recovering/Resolving]
  - Drug hypersensitivity [Unknown]
  - Allergic oedema [Recovered/Resolved]
  - Product storage error [Unknown]
  - Blindness unilateral [Recovered/Resolved]
  - Uveitis [Recovered/Resolved]

NARRATIVE: CASE EVENT DATE: 2011
